FAERS Safety Report 12569298 (Version 1)
Quarter: 2016Q3

REPORT INFORMATION
  Report Type: Spontaneous
  Country: CA (occurrence: CA)
  Receive Date: 20160719
  Receipt Date: 20160719
  Transmission Date: 20161109
  Serious: Yes (Death)
  Sender: FDA-Public Use
  Company Number: CA-JNJFOC-20160710597

PATIENT
  Age: 28 Year
  Sex: Male

DRUGS (1)
  1. TYLENOL EXTRA STRENGTH [Suspect]
     Active Substance: ACETAMINOPHEN
     Indication: PRODUCT USED FOR UNKNOWN INDICATION
     Route: 048

REACTIONS (8)
  - Hepatic steatosis [Fatal]
  - Vomiting [Fatal]
  - Arrhythmia [Fatal]
  - Renal impairment [Fatal]
  - Nausea [Fatal]
  - Overdose [Fatal]
  - Anoxia [Fatal]
  - Pulmonary congestion [Fatal]
